FAERS Safety Report 7206356-9 (Version None)
Quarter: 2010Q4

REPORT INFORMATION
  Report Type: 
  Country: None (occurrence: None)
  Receive Date: 20101228
  Receipt Date: 20101228
  Transmission Date: 20110411
  Serious: Yes (Life-Threatening, Other)
  Sender: FDA-Public Use
  Company Number: None

PATIENT
  Age: 67 Year
  Sex: Male
  Weight: 85.2762 kg

DRUGS (1)
  1. METOPROLOL SUCCINATE EXTENDED RELEASE [Suspect]
     Indication: ATRIAL FIBRILLATION
     Dosage: ONE TABLET ONCE DAILY PO
     Route: 048
     Dates: start: 20101208, end: 20101221

REACTIONS (3)
  - HEART RATE INCREASED [None]
  - PRESYNCOPE [None]
  - PRODUCT SUBSTITUTION ISSUE [None]
